FAERS Safety Report 7686991-4 (Version None)
Quarter: 2011Q3

REPORT INFORMATION
  Report Type: 
  Country: None (occurrence: None)
  Receive Date: 20110816
  Receipt Date: 20110809
  Transmission Date: 20111222
  Serious: Yes (Hospitalization)
  Sender: FDA-Public Use
  Company Number: SE-PFIZER INC-2011181869

PATIENT
  Age: 84 Year
  Sex: Male

DRUGS (9)
  1. ENALAPRIL [Concomitant]
     Dosage: UNK
  2. DICLOFENAC [Concomitant]
     Dosage: 50 MG, UNK
  3. METFORMIN [Concomitant]
     Dosage: 500 MG, UNK
  4. TOVIAZ [Suspect]
     Dosage: UNK
     Route: 048
     Dates: end: 20110401
  5. MORPHINE [Suspect]
     Indication: PROSTATE CANCER
     Dosage: 10 MG, AS NEEDED
     Route: 048
     Dates: end: 20110401
  6. MORPHINE SULFATE [Suspect]
     Dosage: 10 MG, 2X/DAY
     Route: 048
     Dates: end: 20110401
  7. SIMVASTATIN [Concomitant]
     Dosage: 20 MG, UNK
  8. ZOLADEX [Concomitant]
     Dosage: INJECTION
  9. PANODIL FORTE [Concomitant]
     Dosage: 1 G, UNK

REACTIONS (2)
  - CONFUSIONAL STATE [None]
  - HALLUCINATION [None]
